FAERS Safety Report 4608294-4 (Version None)
Quarter: 2005Q1

REPORT INFORMATION
  Report Type: 
  Country: None (occurrence: None)
  Receive Date: 20050303
  Receipt Date: 20041215
  Transmission Date: 20050727
  Serious: No
  Sender: FDA-Public Use
  Company Number: 2004BI001802

PATIENT
  Age: 32 Year
  Sex: Female
  Weight: 70.3075 kg

DRUGS (1)
  1. AMEVIVE [Suspect]
     Indication: PSORIASIS
     Dosage: 15 MG;QW;IM
     Route: 030
     Dates: start: 20041001

REACTIONS (5)
  - CHEST DISCOMFORT [None]
  - DIZZINESS [None]
  - DYSPNOEA [None]
  - LETHARGY [None]
  - NAUSEA [None]
